FAERS Safety Report 6957539-4 (Version None)
Quarter: 2010Q3

REPORT INFORMATION
  Report Type: 
  Country: None (occurrence: None)
  Receive Date: 20100831
  Receipt Date: 20100820
  Transmission Date: 20110219
  Serious: Yes (Other)
  Sender: FDA-Public Use
  Company Number: CA-ELI_LILLY_AND_COMPANY-CA200811000601

PATIENT
  Sex: Male

DRUGS (2)
  1. HUMALOG MIX 75/25 [Suspect]
  2. HUMALOG MIX 75/25 [Suspect]

REACTIONS (5)
  - BLINDNESS [None]
  - CATARACT [None]
  - DIABETIC EYE DISEASE [None]
  - GLAUCOMA [None]
  - VISUAL IMPAIRMENT [None]
